FAERS Safety Report 14485651 (Version 1)
Quarter: 2018Q1

REPORT INFORMATION
  Report Type: Spontaneous
  Country: NO (occurrence: NO)
  Receive Date: 20180205
  Receipt Date: 20180205
  Transmission Date: 20180509
  Serious: Yes (Life-Threatening, Hospitalization)
  Sender: FDA-Public Use
  Company Number: NO-CELGENEUS-NOR-20180108142

PATIENT
  Age: 61 Year
  Sex: Female

DRUGS (7)
  1. MAGNESIUM [Concomitant]
     Active Substance: MAGNESIUM
     Indication: MINERAL SUPPLEMENTATION
     Dosage: 300 MG
     Route: 048
     Dates: start: 201705
  2. CLOBETASOL [Concomitant]
     Active Substance: CLOBETASOL
     Indication: GRAFT VERSUS HOST DISEASE
     Route: 065
     Dates: start: 20171019
  3. ELOCON [Concomitant]
     Active Substance: MOMETASONE FUROATE
     Indication: GRAFT VERSUS HOST DISEASE
     Route: 003
     Dates: start: 201705
  4. VIDAZA [Suspect]
     Active Substance: AZACITIDINE
     Indication: MYELODYSPLASTIC SYNDROME
     Dosage: 100 MG/M2
     Route: 058
     Dates: start: 20171023, end: 20171123
  5. VIDAZA [Suspect]
     Active Substance: AZACITIDINE
     Dosage: 100 MG/M2
     Route: 058
     Dates: start: 2017
  6. ADALAT [Concomitant]
     Active Substance: NIFEDIPINE
     Indication: HYPERTENSION
     Dosage: 20 MG
     Route: 048
     Dates: start: 201705
  7. VALTREX [Concomitant]
     Active Substance: VALACYCLOVIR HYDROCHLORIDE
     Indication: ANTIVIRAL PROPHYLAXIS
     Dosage: 1000 MG
     Route: 048
     Dates: start: 20170420

REACTIONS (1)
  - Organising pneumonia [Recovering/Resolving]

NARRATIVE: CASE EVENT DATE: 20171115
